FAERS Safety Report 13139765 (Version 2)
Quarter: 2017Q1

REPORT INFORMATION
  Report Type: Spontaneous
  Country: FR (occurrence: FR)
  Receive Date: 20170123
  Receipt Date: 20170327
  Transmission Date: 20170428
  Serious: Yes (Hospitalization)
  Sender: FDA-Public Use
  Company Number: FR-PFIZER INC-2017023103

PATIENT
  Age: 67 Year
  Sex: Male

DRUGS (15)
  1. LASILIX /00032601/ [Suspect]
     Active Substance: FUROSEMIDE
     Indication: ACUTE KIDNEY INJURY
     Dosage: UNK
     Route: 042
     Dates: start: 201508, end: 20150826
  2. KEPPRA [Concomitant]
     Active Substance: LEVETIRACETAM
     Dosage: 750 MG, 2X/DAY (MORNING AND EVENING)
  3. TARDYFERON [Concomitant]
     Active Substance: FERROUS SULFATE
     Dosage: 2 DF, 1X/DAY (IN THE MORNING)
  4. LASILIX /00032601/ [Suspect]
     Active Substance: FUROSEMIDE
     Dosage: 60 MG, UNK
     Route: 042
     Dates: start: 20150831, end: 20150908
  5. LANSOPRAZOLE. [Concomitant]
     Active Substance: LANSOPRAZOLE
     Dosage: 30 MG, 1X/DAY (IN THE EVENEING)
  6. ALLOPURINOL. [Concomitant]
     Active Substance: ALLOPURINOL
     Dosage: 100 MG, DAILY
  7. VITAMIN B1 W/VITAMIN B6 [Concomitant]
     Active Substance: PYRIDOXINE HYDROCHLORIDE\THIAMINE HYDROCHLORIDE
     Dosage: 1 DF, 3X/DAY
  8. ALDACTONE [Suspect]
     Active Substance: SPIRONOLACTONE
     Indication: CARDIAC FAILURE
     Dosage: 25 MG, 1X/DAY
     Route: 048
     Dates: start: 201507, end: 20150826
  9. LASILIX /00032601/ [Suspect]
     Active Substance: FUROSEMIDE
     Dosage: 120 MG, DAILY
     Route: 042
     Dates: start: 20150829, end: 20160831
  10. NICOBION [Concomitant]
     Active Substance: NIACINAMIDE
     Dosage: 1 DF, 1X/DAY (IN THE MORNING)
  11. LASILIX /00032601/ [Suspect]
     Active Substance: FUROSEMIDE
     Dosage: 40 MG, UNK
     Route: 048
     Dates: start: 20150831, end: 20150908
  12. NEBIVOLOL. [Concomitant]
     Active Substance: NEBIVOLOL
     Dosage: 5 MG, 1X/DAY (IN THE MORNING)
  13. ALDACTONE [Suspect]
     Active Substance: SPIRONOLACTONE
     Dosage: 12.5 MG, 1X/DAY
     Route: 048
     Dates: start: 20150826, end: 20150908
  14. LASILIX /00032601/ [Suspect]
     Active Substance: FUROSEMIDE
     Dosage: UNK
     Route: 042
     Dates: start: 20150826, end: 20150829
  15. MECIR [Concomitant]
     Active Substance: TAMSULOSIN HYDROCHLORIDE
     Dosage: 1 DF, 1X/DAY (IN THE EVENING)

REACTIONS (2)
  - Nephrotic syndrome [Not Recovered/Not Resolved]
  - Acute kidney injury [Not Recovered/Not Resolved]

NARRATIVE: CASE EVENT DATE: 20150816
